FAERS Safety Report 5361987-6 (Version None)
Quarter: 2007Q2

REPORT INFORMATION
  Report Type: 
  Country: None (occurrence: None)
  Receive Date: 20070619
  Receipt Date: 20070605
  Transmission Date: 20071010
  Serious: Yes (Hospitalization, Other)
  Sender: FDA-Public Use
  Company Number: US-ELI_LILLY_AND_COMPANY-US200705002551

PATIENT
  Age: 70 Year
  Sex: Female

DRUGS (2)
  1. FORTEO [Suspect]
     Indication: OSTEOPOROSIS
     Dosage: UNK, UNKNOWN
     Dates: start: 20030101, end: 20050101
  2. FORTEO [Suspect]
     Dosage: UNK, UNKNOWN
     Dates: start: 20070507

REACTIONS (8)
  - CONTUSION [None]
  - FALL [None]
  - FRACTURED SACRUM [None]
  - MUSCULOSKELETAL PAIN [None]
  - PAIN IN EXTREMITY [None]
  - PELVIC FRACTURE [None]
  - RENAL ANEURYSM [None]
  - RENAL ARTERY OCCLUSION [None]
